FAERS Safety Report 6355812-4 (Version None)
Quarter: 2009Q3

REPORT INFORMATION
  Report Type: 
  Country: None (occurrence: None)
  Receive Date: 20090915
  Receipt Date: 20090901
  Transmission Date: 20100115
  Serious: Yes (Other)
  Sender: FDA-Public Use
  Company Number: LK-RANBAXY-2009RR-26951

PATIENT
  Age: 53 Year
  Sex: Female

DRUGS (10)
  1. SERTRALINE HCL [Suspect]
     Indication: DEPRESSION
     Dosage: 50 MG, UNK
  2. ARTHRITIS QR [Suspect]
     Indication: BACK PAIN
     Dosage: UNK
  3. CHOLESTEROL QR [Suspect]
     Indication: BACK PAIN
     Dosage: UNK
  4. TRIPHALA CHURNA [Suspect]
     Indication: BACK PAIN
     Dosage: UNK
  5. YOGARAJA GUGGULU [Suspect]
     Indication: BACK PAIN
     Dosage: UNK
  6. MENTAT [Suspect]
     Indication: BACK PAIN
     Dosage: UNK
  7. RUMALAYA [Suspect]
     Indication: BACK PAIN
     Dosage: UNK
  8. DECOCTION-1 [Suspect]
     Indication: BACK PAIN
     Dosage: UNK
  9. DECOCTION-2 [Suspect]
     Indication: BACK PAIN
     Dosage: UNK
  10. SERTRALINE HCL [Concomitant]
     Dosage: 100 MG, QD

REACTIONS (2)
  - DEPRESSION [None]
  - DRUG INTERACTION [None]
